FAERS Safety Report 4604668-6 (Version None)
Quarter: 2005Q2

REPORT INFORMATION
  Report Type: 
  Country: None (occurrence: None)
  Receive Date: 20050223
  Receipt Date: 20041109
  Transmission Date: 20051028
  Serious: No
  Sender: FDA-Public Use
  Company Number: PHEH2004US12061

PATIENT
  Age: 48 Year
  Sex: Female

DRUGS (14)
  1. ZELNORM [Suspect]
     Indication: IRRITABLE BOWEL SYNDROME
     Dosage: 6 MG, BID, ORAL
     Route: 048
     Dates: start: 20040901
  2. DORYX [Concomitant]
  3. LAMOTROGINE (LAMOTRIGINE) [Concomitant]
  4. TRAZODONE (TRAZODONE) [Concomitant]
  5. EFFEXOR [Concomitant]
  6. DILTIAZEM [Concomitant]
  7. GEODON [Concomitant]
  8. PLAVIX [Concomitant]
  9. LOVASTATIN [Concomitant]
  10. LEVOTHYROID (LEVOTHYROID) [Concomitant]
  11. PREVACID [Concomitant]
  12. STRATTERA [Concomitant]
  13. ADVAIR (FLUTICASONE PROPIONATE, SALMETEROL XINAFOATE) [Concomitant]
  14. ALBUTEROL [Concomitant]

REACTIONS (5)
  - ANOREXIA [None]
  - NAUSEA [None]
  - RETCHING [None]
  - VOMITING [None]
  - WEIGHT DECREASED [None]
